FAERS Safety Report 4676026-X (Version None)
Quarter: 2005Q2

REPORT INFORMATION
  Report Type: 
  Country: None (occurrence: None)
  Receive Date: 20050527
  Receipt Date: 20050426
  Transmission Date: 20051028
  Serious: No
  Sender: FDA-Public Use
  Company Number: US-GLAXOSMITHKLINE-A0555864A

PATIENT
  Age: 62 Year
  Sex: Female

DRUGS (5)
  1. WELLBUTRIN XL [Suspect]
     Indication: DEPRESSION
     Dosage: 450MG VARIABLE DOSE
     Route: 048
     Dates: start: 20040801
  2. ATENOLOL [Concomitant]
  3. LEVOXYL [Concomitant]
  4. MAXZIDE [Concomitant]
  5. ARTHROTEC [Concomitant]

REACTIONS (1)
  - CONSTIPATION [None]
